FAERS Safety Report 5853477-9 (Version None)
Quarter: 2008Q3

REPORT INFORMATION
  Report Type: 
  Country: None (occurrence: None)
  Receive Date: 20080818
  Receipt Date: 20080428
  Transmission Date: 20090109
  Serious: No
  Sender: FDA-Public Use
  Company Number: WAES 0804USA06329

PATIENT
  Sex: Male

DRUGS (6)
  1. JANUVIA [Suspect]
     Indication: DIABETES MELLITUS
     Dosage: PO
     Route: 048
  2. ZETIA [Concomitant]
  3. ZOCOR [Concomitant]
  4. THERAPY UNSPECIFIED [Concomitant]
  5. METFORMIN HCL [Concomitant]
  6. PIOGLITAZONE HYDROCHLORIDE [Concomitant]

REACTIONS (1)
  - HIGH DENSITY LIPOPROTEIN DECREASED [None]
